FAERS Safety Report 15418131 (Version 1)
Quarter: 2018Q3

REPORT INFORMATION
  Report Type: Spontaneous
  Country: US (occurrence: US)
  Receive Date: 20180924
  Receipt Date: 20180924
  Transmission Date: 20181010
  Serious: Yes (Hospitalization, Other)
  Sender: FDA-Public Use
  Company Number: US-OTSUKA-2018_022605

PATIENT
  Sex: Male

DRUGS (2)
  1. ABILIFY [Suspect]
     Active Substance: ARIPIPRAZOLE
     Indication: ANXIETY
  2. ABILIFY [Suspect]
     Active Substance: ARIPIPRAZOLE
     Indication: MAJOR DEPRESSION
     Dosage: UNK
     Route: 065
     Dates: start: 2011, end: 2013

REACTIONS (12)
  - Suicide attempt [Not Recovered/Not Resolved]
  - Trichotillomania [Not Recovered/Not Resolved]
  - Economic problem [Unknown]
  - Suicidal ideation [Not Recovered/Not Resolved]
  - Mental disorder [Unknown]
  - Compulsive shopping [Not Recovered/Not Resolved]
  - Product use in unapproved indication [Unknown]
  - Divorced [Unknown]
  - Dermatillomania [Not Recovered/Not Resolved]
  - Gambling disorder [Not Recovered/Not Resolved]
  - Obsessive-compulsive disorder [Not Recovered/Not Resolved]
  - Loss of employment [Unknown]

NARRATIVE: CASE EVENT DATE: 2011
